FAERS Safety Report 24845817 (Version 1)
Quarter: 2025Q1

REPORT INFORMATION
  Report Type: Spontaneous
  Country: US (occurrence: US)
  Receive Date: 20250115
  Receipt Date: 20250115
  Transmission Date: 20250409
  Serious: No
  Sender: JOHNSON AND JOHNSON
  Company Number: US-JNJFOC-20250134995

PATIENT
  Age: 29 Year
  Sex: Female
  Weight: 110 kg

DRUGS (4)
  1. REMICADE [Suspect]
     Active Substance: INFLIXIMAB
     Indication: Product used for unknown indication
     Route: 065
  2. MAGNESIUM GLYCINATE [Concomitant]
     Active Substance: MAGNESIUM GLYCINATE
     Route: 048
     Dates: start: 20240924
  3. VITAMIN B6 PLUS [Concomitant]
     Dates: start: 20240924
  4. PRENATAL VITAMINS [ASCORBIC ACID;CALCIUM PANTOTHENATE;CYANOCOBALAMIN;E [Concomitant]
     Route: 048
     Dates: start: 20240924

REACTIONS (1)
  - Paternal exposure during pregnancy [Not Recovered/Not Resolved]
